FAERS Safety Report 6880912-X (Version None)
Quarter: 2010Q3

REPORT INFORMATION
  Report Type: 
  Country: None (occurrence: None)
  Receive Date: 20100728
  Receipt Date: 20100722
  Transmission Date: 20110219
  Serious: Yes (Other)
  Sender: FDA-Public Use
  Company Number: IT-BRISTOL-MYERS SQUIBB COMPANY-15203953

PATIENT
  Age: 66 Year
  Sex: Male

DRUGS (1)
  1. PLATINEX [Suspect]
     Indication: BENIGN PLEURAL MESOTHELIOMA
     Dates: start: 20100404, end: 20100507

REACTIONS (3)
  - ABDOMINAL PAIN UPPER [None]
  - FLUSHING [None]
  - HYPERHIDROSIS [None]
